FAERS Safety Report 9253004 (Version 1)
Quarter: 2013Q2

REPORT INFORMATION
  Report Type: Spontaneous
  Country: US (occurrence: US)
  Receive Date: 20130424
  Receipt Date: 20130424
  Transmission Date: 20140414
  Serious: Yes (Other)
  Sender: FDA-Public Use
  Company Number: US-MYLANLABS-2013S1008132

PATIENT
  Age: 84 Year
  Sex: Male

DRUGS (9)
  1. RISPERIDONE [Suspect]
     Indication: DEPRESSION
     Route: 065
  2. CARBIDOPA LEVODOPA [Suspect]
     Indication: PARKINSON^S DISEASE
     Dosage: LEVODOPA 100MG/CARBIDOPA 25MG
     Route: 065
  3. SERTRALINE [Concomitant]
     Indication: DEPRESSION
     Route: 065
     Dates: start: 200809
  4. LAMOTRIGINE [Concomitant]
     Route: 065
  5. HYDROCHLOROTHIAZIDE [Concomitant]
     Route: 065
  6. LISINOPRIL [Concomitant]
     Route: 065
  7. IPRATROPIUM BROMIDE [Concomitant]
     Route: 045
  8. FLUTICASONE PROPIONATE [Concomitant]
     Route: 045
  9. ATORVASTATIN [Concomitant]
     Route: 065

REACTIONS (3)
  - Parkinsonism [Recovering/Resolving]
  - Fatigue [Unknown]
  - Somnolence [Unknown]
